FAERS Safety Report 7892383-5 (Version None)
Quarter: 2011Q4

REPORT INFORMATION
  Report Type: 
  Country: None (occurrence: None)
  Receive Date: 20111101
  Receipt Date: 20111020
  Transmission Date: 20120403
  Serious: Yes (Death, Hospitalization, Disabling, Other)
  Sender: FDA-Public Use
  Company Number: 2008JP004656

PATIENT
  Age: 42 Year
  Sex: Female

DRUGS (23)
  1. ALLOPURINOL [Concomitant]
  2. ANPLAG (SARPOGRELATE  HYDROCHLORIDE) [Concomitant]
  3. URSO 250 [Concomitant]
  4. PREDNISOLONE [Concomitant]
  5. RISEDRONATE SODIUM [Concomitant]
  6. PAXIL [Concomitant]
  7. PROTECADIN (LAFUTIDINE) [Concomitant]
  8. ALLEGRA [Concomitant]
  9. SALAGEN [Concomitant]
  10. ACECOL (TEMOCAPRIL HYDROCHLORIDE) [Concomitant]
  11. TACROLIMUS [Suspect]
     Indication: LUPUS NEPHRITIS
     Dosage: 3 MG, /D, ORAL, 2 MG, /D, ORAL, 2 MG, /D, ORAL, 2 MG, /D, ORAL
     Route: 048
     Dates: start: 20070827, end: 20080331
  12. TACROLIMUS [Suspect]
     Indication: LUPUS NEPHRITIS
     Dosage: 3 MG, /D, ORAL, 2 MG, /D, ORAL, 2 MG, /D, ORAL, 2 MG, /D, ORAL
     Route: 048
     Dates: start: 20080603, end: 20090602
  13. TACROLIMUS [Suspect]
     Indication: LUPUS NEPHRITIS
     Dosage: 3 MG, /D, ORAL, 2 MG, /D, ORAL, 2 MG, /D, ORAL, 2 MG, /D, ORAL
     Route: 048
     Dates: start: 20080401, end: 20080602
  14. TACROLIMUS [Suspect]
     Indication: LUPUS NEPHRITIS
     Dosage: 3 MG, /D, ORAL, 2 MG, /D, ORAL, 2 MG, /D, ORAL, 2 MG, /D, ORAL
     Route: 048
     Dates: start: 20090603, end: 20110117
  15. TACROLIMUS [Suspect]
     Indication: LUPUS NEPHRITIS
     Dosage: 3 MG, /D, ORAL, 2 MG, /D, ORAL, 2 MG, /D, ORAL, 2 MG, /D, ORAL
     Route: 048
     Dates: start: 20110225, end: 20110502
  16. ONEALFA (ALFACALCIDOL) [Concomitant]
  17. OMEPRAZOLE [Concomitant]
  18. ADALAT CR (NIFEDIPINE) SLOW RELEASE TABLET [Concomitant]
  19. BLOPRESS (CANDESARTAN CILEXETIL) [Concomitant]
  20. LASIX [Concomitant]
  21. VIT K CAP [Concomitant]
  22. ZYLORIC (ALLOPURINOL SODIUM) [Concomitant]
  23. EVOXAC [Concomitant]

REACTIONS (14)
  - BLOOD PRESSURE INCREASED [None]
  - HAEMODIALYSIS [None]
  - BLOOD CREATININE INCREASED [None]
  - CARDIAC TAMPONADE [None]
  - GAMMA-GLUTAMYLTRANSFERASE INCREASED [None]
  - CONDITION AGGRAVATED [None]
  - RENAL FAILURE CHRONIC [None]
  - RASH [None]
  - NO THERAPEUTIC RESPONSE [None]
  - NEPHROGENIC ANAEMIA [None]
  - BLOOD ALKALINE PHOSPHATASE INCREASED [None]
  - PLATELET COUNT DECREASED [None]
  - DECREASED APPETITE [None]
  - SYSTEMIC LUPUS ERYTHEMATOSUS [None]
